FAERS Safety Report 4713616-X (Version None)
Quarter: 2005Q3

REPORT INFORMATION
  Report Type: 
  Country: None (occurrence: None)
  Receive Date: 20050712
  Receipt Date: 20050624
  Transmission Date: 20060218
  Serious: Yes (Hospitalization)
  Sender: FDA-Public Use
  Company Number: DE_050616288

PATIENT
  Sex: Male

DRUGS (1)
  1. CIALIS [Suspect]
     Indication: ERECTILE DYSFUNCTION
     Dosage: 10 MG DAY
     Dates: start: 20030916

REACTIONS (3)
  - EYE DISORDER [None]
  - INFARCTION [None]
  - OCULAR VASCULAR DISORDER [None]
